FAERS Safety Report 8167666-4 (Version None)
Quarter: 2012Q1

REPORT INFORMATION
  Report Type: 
  Country: None (occurrence: None)
  Receive Date: 20120227
  Receipt Date: 20120222
  Transmission Date: 20120608
  Serious: No
  Sender: FDA-Public Use
  Company Number: US-BAYER-2012-018780

PATIENT
  Sex: Female

DRUGS (1)
  1. GADAVIST [Suspect]
     Indication: NUCLEAR MAGNETIC RESONANCE IMAGING BRAIN
     Dosage: 9.5 ML, ONCE

REACTIONS (2)
  - ERYTHEMA [None]
  - NAUSEA [None]
